FAERS Safety Report 9230970 (Version 1)
Quarter: 2013Q2

REPORT INFORMATION
  Report Type: Spontaneous
  Country: FR (occurrence: FR)
  Receive Date: 20130415
  Receipt Date: 20130415
  Transmission Date: 20140414
  Serious: Yes (Death, Life-Threatening, Hospitalization, Other)
  Sender: FDA-Public Use
  Company Number: FR-ASTRAZENECA-2013SE23875

PATIENT
  Age: 4220 Week
  Sex: Female

DRUGS (6)
  1. BRILIQUE [Suspect]
     Indication: CORONARY ARTERY DISEASE
     Route: 048
     Dates: start: 20121021
  2. KARDEGIC [Interacting]
     Indication: CORONARY ARTERY DISEASE
     Route: 048
     Dates: start: 20121021
  3. LOVENOX [Suspect]
     Indication: CORONARY ARTERY DISEASE
     Route: 058
     Dates: start: 20121028
  4. ATENOLOL [Concomitant]
  5. AMLOR [Concomitant]
  6. COVERSYL [Concomitant]

REACTIONS (6)
  - Drug interaction [Fatal]
  - Implant site haemorrhage [Fatal]
  - Hallucination [Unknown]
  - Sinus arrest [Unknown]
  - Anaemia [Unknown]
  - Post procedural haemorrhage [Unknown]
